FAERS Safety Report 6115424-4 (Version None)
Quarter: 2009Q1

REPORT INFORMATION
  Report Type: 
  Country: None (occurrence: None)
  Receive Date: 20090313
  Receipt Date: 20090305
  Transmission Date: 20090719
  Serious: Yes (Hospitalization)
  Sender: FDA-Public Use
  Company Number: FR-PFIZER INC-2009179827

PATIENT

DRUGS (1)
  1. TAHOR [Suspect]
     Indication: CEREBROVASCULAR ACCIDENT
     Dosage: 80MG

REACTIONS (1)
  - CELL DEATH [None]
